FAERS Safety Report 9298366 (Version 2)
Quarter: 2013Q2

REPORT INFORMATION
  Report Type: Spontaneous
  Country: MX (occurrence: MX)
  Receive Date: 20130520
  Receipt Date: 20130607
  Transmission Date: 20140414
  Serious: Yes (Other)
  Sender: FDA-Public Use
  Company Number: MX-JNJFOC-20130508542

PATIENT
  Age: 28 Year
  Sex: Female
  Weight: 52 kg

DRUGS (5)
  1. REMICADE [Suspect]
     Indication: ANKYLOSING SPONDYLITIS
     Route: 042
     Dates: start: 20130406, end: 20130406
  2. PARACETAMOL [Concomitant]
     Route: 048
  3. RANISEN [Concomitant]
     Route: 042
  4. CLOROTRIMETON [Concomitant]
     Route: 042
  5. HYDROCORTISONE [Concomitant]
     Route: 042

REACTIONS (7)
  - Bronchospasm [Recovered/Resolved]
  - Laryngospasm [Unknown]
  - Dyspnoea [Unknown]
  - Infusion related reaction [Recovering/Resolving]
  - Diarrhoea [Recovered/Resolved]
  - Vomiting [Recovered/Resolved]
  - Nausea [Recovered/Resolved]
